FAERS Safety Report 12599526 (Version 1)
Quarter: 2016Q3

REPORT INFORMATION
  Report Type: Not Available
  Country: None (occurrence: US)
  Receive Date: 20160727
  Receipt Date: 20160727
  Transmission Date: 20161109
  Serious: No
  Sender: FDA-Public Use
  Company Number: US-AKORN-18495

PATIENT
  Age: 86 Year
  Sex: Male

DRUGS (1)
  1. HYDROCORTISONE AND ACETIC ACID OTIC SOLUTION [Suspect]
     Active Substance: ACETIC ACID\HYDROCORTISONE

REACTIONS (2)
  - Ear haemorrhage [None]
  - Drug ineffective [None]
